FAERS Safety Report 16075692 (Version 1)
Quarter: 2019Q1

REPORT INFORMATION
  Report Type: Spontaneous
  Country: CA (occurrence: CA)
  Receive Date: 20190315
  Receipt Date: 20190315
  Transmission Date: 20190418
  Serious: Yes (Death)
  Sender: FDA-Public Use
  Company Number: CA-JNJFOC-20190311095

PATIENT
  Age: 103 Day
  Sex: Female
  Weight: 4 kg

DRUGS (1)
  1. INFANTS TYLENOL [Suspect]
     Active Substance: ACETAMINOPHEN
     Indication: PRODUCT USED FOR UNKNOWN INDICATION
     Route: 065

REACTIONS (5)
  - Cyanosis [Fatal]
  - Drug level above therapeutic [Fatal]
  - Unresponsive to stimuli [Fatal]
  - Breath sounds absent [Fatal]
  - Sudden death [Fatal]
